FAERS Safety Report 5679844-4 (Version None)
Quarter: 2008Q1

REPORT INFORMATION
  Report Type: 
  Country: None (occurrence: None)
  Receive Date: 20080324
  Receipt Date: 20080307
  Transmission Date: 20080703
  Serious: Yes (Death, Other)
  Sender: FDA-Public Use
  Company Number: 2008EU000517

PATIENT
  Age: 8 Year
  Sex: Female

DRUGS (14)
  1. PROGRAF [Suspect]
     Indication: LIVER TRANSPLANT
     Dosage: 2 MG, ORAL
     Route: 048
     Dates: start: 20070727, end: 20070806
  2. SIMULECT [Suspect]
     Indication: LIVER TRANSPLANT
     Dosage: 2 DF, TOTAL DOSE, IV NOS
     Route: 042
     Dates: start: 20070727, end: 20070731
  3. PROSTIN E2 [Suspect]
     Indication: LIVER TRANSPLANT
     Dosage: UID/QD, ORAL
     Route: 048
     Dates: start: 20070727, end: 20070731
  4. HEPARIN [Concomitant]
  5. ZINACEF [Concomitant]
  6. GARAMYCIN [Concomitant]
  7. AMPHO MORONAL [Concomitant]
  8. MORPHINE [Concomitant]
  9. GANCICLOVIR SODIUM [Concomitant]
  10. NIPRIDE (NITROPRUSSIDE SODIUM) [Concomitant]
  11. TRINITROSAN (GLYCERYL TRINITRATE) [Concomitant]
  12. LASIX [Concomitant]
  13. PERFALGAN [Concomitant]
  14. ASPIRIN [Concomitant]

REACTIONS (12)
  - ASCITES [None]
  - CAPILLARY LEAK SYNDROME [None]
  - CARDIAC ARREST [None]
  - CARDIOVASCULAR DISORDER [None]
  - GENERAL PHYSICAL HEALTH DETERIORATION [None]
  - HAEMODIALYSIS [None]
  - MYOCARDIAL ISCHAEMIA [None]
  - PERICARDIAL EFFUSION [None]
  - PLEURAL EFFUSION [None]
  - PYREXIA [None]
  - RENAL IMPAIRMENT [None]
  - SYSTEMIC INFLAMMATORY RESPONSE SYNDROME [None]
